FAERS Safety Report 9758505 (Version 1)
Quarter: 2013Q4

REPORT INFORMATION
  Report Type: Spontaneous
  Country: US (occurrence: None)
  Receive Date: 20131216
  Receipt Date: 20131216
  Transmission Date: 20140711
  Serious: No
  Sender: FDA-Public Use
  Company Number: CABO-13002715

PATIENT
  Age: 44 Year
  Sex: Male

DRUGS (3)
  1. COMETRIQ (CABOZANTINIB) CAPSULE [Suspect]
     Indication: THYROID CANCER
     Dosage: 140 MG, QD
     Dates: start: 20130309, end: 20130509
  2. METFORMIN [Concomitant]
  3. ATENOLOL [Concomitant]

REACTIONS (2)
  - Groin pain [None]
  - Muscle spasms [None]
